FAERS Safety Report 21557497 (Version 3)
Quarter: 2022Q4

REPORT INFORMATION
  Report Type: Spontaneous
  Country: US (occurrence: US)
  Receive Date: 20221105
  Receipt Date: 20221224
  Transmission Date: 20230113
  Serious: No
  Sender: FDA-Public Use
  Company Number: US-UNITED THERAPEUTICS-UNT-2022-026024

PATIENT
  Sex: Female

DRUGS (4)
  1. REMODULIN [Suspect]
     Active Substance: TREPROSTINIL
     Indication: Pulmonary arterial hypertension
     Dosage: UNK, CONTINUING
     Route: 058
     Dates: start: 20220406
  2. REMODULIN [Suspect]
     Active Substance: TREPROSTINIL
     Dosage: 0.0214 ?G/KG, CONTINUING
     Route: 058
     Dates: start: 2022, end: 202210
  3. REMODULIN [Suspect]
     Active Substance: TREPROSTINIL
     Dosage: 0.0214 ?G/KG (AT A RATE OF 0.02ML/HR), CONTINUING (RESTARTED)
     Route: 058
     Dates: start: 202210
  4. SILDENAFIL [Suspect]
     Active Substance: SILDENAFIL
     Indication: Product used for unknown indication
     Dosage: UNK
     Route: 065

REACTIONS (4)
  - Nasopharyngitis [Not Recovered/Not Resolved]
  - Diarrhoea [Not Recovered/Not Resolved]
  - Tinnitus [Unknown]
  - Drug delivery system malfunction [Recovered/Resolved]

NARRATIVE: CASE EVENT DATE: 20220101
